FAERS Safety Report 14075369 (Version 2)
Quarter: 2017Q4

REPORT INFORMATION
  Report Type: Report from Study
  Country: RO (occurrence: RO)
  Receive Date: 20171011
  Receipt Date: 20171018
  Transmission Date: 20180321
  Serious: Yes (Other)
  Sender: FDA-Public Use
  Company Number: PHHY2017RO146467

PATIENT
  Sex: Female

DRUGS (2)
  1. PASIREOTIDE. [Suspect]
     Active Substance: PASIREOTIDE
     Indication: ACROMEGALY
     Dosage: 30 MG, EVERY 4 WEEKS
     Route: 030
     Dates: start: 2012
  2. PASIREOTIDE. [Suspect]
     Active Substance: PASIREOTIDE
     Dosage: 60 MG, EVERY 4 WEEKS
     Route: 030
     Dates: start: 2014, end: 2017

REACTIONS (1)
  - Diabetes mellitus [Unknown]

NARRATIVE: CASE EVENT DATE: 2013
